FAERS Safety Report 4611380-6 (Version None)
Quarter: 2005Q2

REPORT INFORMATION
  Report Type: 
  Country: None (occurrence: None)
  Receive Date: 20050311
  Receipt Date: 20050124
  Transmission Date: 20051028
  Serious: No
  Sender: FDA-Public Use
  Company Number: 2005-BP-01157BP

PATIENT
  Age: 41 Year
  Sex: Female

DRUGS (15)
  1. SPIRIVA [Suspect]
     Indication: CHRONIC OBSTRUCTIVE PULMONARY DISEASE
     Dosage: 36 MCG (18 MCG, 2 IN 1 D), IH
     Route: 055
     Dates: start: 20040601
  2. SPIRIVA [Suspect]
  3. SPIRIVA [Suspect]
  4. SPIRIVA [Suspect]
  5. ADVAIR DISKUS 100/50 [Concomitant]
  6. FENTANYL (FENTANYL) [Concomitant]
  7. DIAZEPAM [Concomitant]
  8. METOCLOPRAMIDE [Concomitant]
  9. SKELAXIN [Concomitant]
  10. COMPAZINE [Concomitant]
  11. NEURONTIN [Concomitant]
  12. ESTRADIOL [Concomitant]
  13. PREDNISONE [Concomitant]
  14. PROZAC [Concomitant]
  15. SOMA [Concomitant]

REACTIONS (2)
  - CHEST PAIN [None]
  - DRUG INEFFECTIVE [None]
